FAERS Safety Report 8337658-0 (Version None)
Quarter: 2012Q2

REPORT INFORMATION
  Report Type: 
  Country: None (occurrence: None)
  Receive Date: 20120504
  Receipt Date: 20120504
  Transmission Date: 20120825
  Serious: Yes (Death, Congenital Anomaly)
  Sender: FDA-Public Use
  Company Number: None

PATIENT
  Age: 32 Year
  Sex: Female
  Weight: 59 kg

DRUGS (1)
  1. INDOMETHACIN [Suspect]
     Indication: UTERINE LEIOMYOMA
     Dosage: |DOSAGETEXT: 100.0 MG||STRENGTH: 50MG||FREQ: ONCE||ROUTE: ORAL|
     Route: 048
     Dates: start: 20120427, end: 20120427

REACTIONS (3)
  - PREMATURE DELIVERY [None]
  - MATERNAL EXPOSURE DURING PREGNANCY [None]
  - INCORRECT DOSE ADMINISTERED [None]
